FAERS Safety Report 6509248-3 (Version None)
Quarter: 2009Q4

REPORT INFORMATION
  Report Type: 
  Country: None (occurrence: None)
  Receive Date: 20091222
  Receipt Date: 20091209
  Transmission Date: 20100525
  Serious: Yes (Hospitalization, Other)
  Sender: FDA-Public Use
  Company Number: US-BIOGENIDEC-2009BI034211

PATIENT
  Age: 49 Year
  Sex: Female

DRUGS (10)
  1. TYSABRI [Suspect]
     Indication: MULTIPLE SCLEROSIS
     Route: 042
     Dates: start: 20080505
  2. PROVIGIL [Concomitant]
     Indication: FATIGUE
     Route: 048
  3. BACLOFEN [Concomitant]
     Indication: MUSCLE SPASTICITY
     Route: 048
  4. PREVACID [Concomitant]
     Indication: GASTRIC PH DECREASED
     Route: 048
  5. DETROL [Concomitant]
     Indication: URINARY INCONTINENCE
     Route: 048
  6. ALLEGRA [Concomitant]
     Indication: MULTIPLE ALLERGIES
     Route: 048
  7. LYRICA [Concomitant]
     Indication: PARAESTHESIA
     Route: 048
  8. CARDURA [Concomitant]
     Indication: HYPERTENSION
     Route: 048
  9. NORTRIPTYLINE [Concomitant]
     Route: 048
  10. LACTROL (LACTOSE INTOLERANCE) [Concomitant]

REACTIONS (1)
  - CHOLECYSTITIS [None]
